FAERS Safety Report 9750172 (Version 1)
Quarter: 2013Q4

REPORT INFORMATION
  Report Type: Spontaneous
  Country: MX (occurrence: MX)
  Receive Date: 20131212
  Receipt Date: 20131212
  Transmission Date: 20140711
  Serious: Yes (Hospitalization, Other)
  Sender: FDA-Public Use
  Company Number: PHHY2013MX143102

PATIENT
  Age: 58 Year
  Sex: Female

DRUGS (3)
  1. TEGRETOL [Suspect]
     Indication: EPILEPSY
     Dosage: 2 (200 MG) DAILY
     Route: 048
  2. TEGRETOL [Suspect]
     Dosage: 8(200MG), DAILY
     Route: 048
     Dates: start: 201306
  3. TEGRETOL [Suspect]
     Dosage: 6(200MG), DAILY
     Route: 048

REACTIONS (10)
  - Postoperative wound infection [Recovered/Resolved]
  - Thrombosis [Recovered/Resolved]
  - Bone disorder [Recovering/Resolving]
  - Thyroid cancer [Recovered/Resolved]
  - Drug interaction [Recovered/Resolved]
  - Convulsion [Recovered/Resolved]
  - Urinary tract infection [Recovered/Resolved]
  - Pyrexia [Recovered/Resolved]
  - Pain [Recovering/Resolving]
  - Anticonvulsant drug level decreased [Recovered/Resolved]
